FAERS Safety Report 20893530 (Version 1)
Quarter: 2022Q2

REPORT INFORMATION
  Report Type: Spontaneous
  Country: NL (occurrence: NL)
  Receive Date: 20220531
  Receipt Date: 20220531
  Transmission Date: 20220721
  Serious: Yes (Other)
  Sender: FDA-Public Use
  Company Number: None

PATIENT
  Sex: Female

DRUGS (4)
  1. EZETIMIBE [Suspect]
     Active Substance: EZETIMIBE
     Indication: Coronary artery disease
     Dosage: STRENGTH: 10 MG, 1D1T
     Dates: start: 20210928, end: 20220201
  2. ROSUVASTATIN CALCIUM [Suspect]
     Active Substance: ROSUVASTATIN CALCIUM
     Indication: Coronary artery disease
     Dosage: STRENGTH:10 MG, 1D1T
     Dates: start: 20210928, end: 20220201
  3. PANTOPRAZOLE [Concomitant]
     Active Substance: PANTOPRAZOLE
     Dosage: STRENGTH:40 MG , GASTRO-RESISTANT TABLET, 40 MG (MILLIGRAMS)
  4. ASPIRIN [Concomitant]
     Active Substance: ASPIRIN
     Dosage: STRENGTH:80 MG (MILLIGRAM), TABLET, 80 MG (MILLIGRAM)

REACTIONS (2)
  - Fatigue [Recovered/Resolved]
  - Dyspnoea [Recovered/Resolved]
